FAERS Safety Report 22993348 (Version 2)
Quarter: 2023Q4

REPORT INFORMATION
  Report Type: Other
  Country: US (occurrence: US)
  Receive Date: 20230927
  Receipt Date: 20231025
  Transmission Date: 20240109
  Serious: Yes (Hospitalization, Other)
  Sender: FDA-Public Use
  Company Number: US-UROVANT SCIENCES GMBH-202309-URV-001860

PATIENT
  Sex: Female

DRUGS (2)
  1. GEMTESA [Suspect]
     Active Substance: VIBEGRON
     Indication: Product used for unknown indication
     Dosage: UNK
     Route: 048
     Dates: start: 2021
  2. GEMTESA [Suspect]
     Active Substance: VIBEGRON
     Dosage: UNK
     Route: 048
     Dates: start: 202308

REACTIONS (3)
  - Syncope [Recovered/Resolved]
  - Orthostatic hypotension [Unknown]
  - Inability to afford medication [Unknown]

NARRATIVE: CASE EVENT DATE: 20210101
